FAERS Safety Report 13112710 (Version 1)
Quarter: 2017Q1

REPORT INFORMATION
  Report Type: Spontaneous
  Country: DE (occurrence: DE)
  Receive Date: 20170113
  Receipt Date: 20170113
  Transmission Date: 20170428
  Serious: Yes (Hospitalization, Other)
  Sender: FDA-Public Use
  Company Number: DE-ASTELLAS-2017US000640

PATIENT
  Age: 66 Year

DRUGS (15)
  1. TACROLIMUS. [Suspect]
     Active Substance: TACROLIMUS
     Dosage: UNK UNK, TWICE DAILY
     Route: 065
  2. TACROLIMUS. [Suspect]
     Active Substance: TACROLIMUS
     Route: 065
  3. ISONIAZID. [Suspect]
     Active Substance: ISONIAZID
     Indication: ANTIBIOTIC PROPHYLAXIS
     Dosage: UNK UNK, UNKNOWN FREQ.
     Route: 065
  4. TACROLIMUS. [Suspect]
     Active Substance: TACROLIMUS
     Indication: RENAL TRANSPLANT
     Route: 065
  5. TACROLIMUS. [Suspect]
     Active Substance: TACROLIMUS
     Route: 065
  6. AMIKACIN [Suspect]
     Active Substance: AMIKACIN
     Indication: ANTIBIOTIC THERAPY
     Dosage: UNK UNK, UNKNOWN FREQ.
     Route: 065
  7. PREDNISOLONE. [Suspect]
     Active Substance: PREDNISOLONE
     Route: 065
  8. MYCOPHENOLATE MOFETIL. [Suspect]
     Active Substance: MYCOPHENOLATE MOFETIL
     Route: 065
  9. TRIMETHOPRIM SULFAMETHOXAZOLE [Suspect]
     Active Substance: SULFAMETHOXAZOLE\TRIMETHOPRIM
     Indication: ANTIBIOTIC THERAPY
     Route: 048
     Dates: start: 20130402, end: 20130404
  10. VALGANCICLOVIR. [Suspect]
     Active Substance: VALGANCICLOVIR
     Indication: ANTIBIOTIC THERAPY
     Dosage: UNK UNK, UNKNOWN FREQ.
     Route: 048
  11. THYMOGLOBULIN [Concomitant]
     Active Substance: LAPINE T-LYMPHOCYTE IMMUNE GLOBULIN
     Indication: RENAL TRANSPLANT
     Dosage: UNK UNK, UNKNOWN FREQ.
     Route: 065
  12. PREDNISOLONE. [Suspect]
     Active Substance: PREDNISOLONE
     Route: 065
  13. MYCOPHENOLATE MOFETIL. [Suspect]
     Active Substance: MYCOPHENOLATE MOFETIL
     Indication: RENAL TRANSPLANT
     Route: 065
  14. PREDNISOLONE. [Suspect]
     Active Substance: PREDNISOLONE
     Indication: RENAL TRANSPLANT
     Route: 065
  15. PREDNISOLONE. [Suspect]
     Active Substance: PREDNISOLONE
     Route: 065

REACTIONS (32)
  - Candida infection [Unknown]
  - Drug level fluctuating [Unknown]
  - Cardiac failure [Unknown]
  - Inappropriate antidiuretic hormone secretion [Unknown]
  - Mycobacterium fortuitum infection [Unknown]
  - Enterococcal infection [Unknown]
  - Central nervous system lesion [Unknown]
  - Hyperacusis [Unknown]
  - Renal transplant failure [Recovered/Resolved]
  - Lymphocele [Unknown]
  - Ventricular extrasystoles [Unknown]
  - Nocardiosis [Recovered/Resolved]
  - Urinary tract infection [Unknown]
  - Productive cough [Unknown]
  - Hyperkalaemia [Unknown]
  - Tachycardia [Unknown]
  - Acinetobacter infection [Unknown]
  - Herpes simplex [Unknown]
  - Pneumonia [Unknown]
  - Arthralgia [Recovered/Resolved]
  - Tremor [Unknown]
  - Pulmonary tuberculosis [Unknown]
  - Cytomegalovirus viraemia [Unknown]
  - Delayed graft function [Unknown]
  - Ventricular tachycardia [Unknown]
  - Hyponatraemia [Recovered/Resolved]
  - Pancreatic pseudocyst [Unknown]
  - Acute kidney injury [Unknown]
  - Subcutaneous abscess [Unknown]
  - Pleural effusion [Unknown]
  - Urogenital infection bacterial [Unknown]
  - Hypoacusis [Unknown]

NARRATIVE: CASE EVENT DATE: 201306
